FAERS Safety Report 23391348 (Version 1)
Quarter: 2024Q1

REPORT INFORMATION
  Report Type: Report from Study
  Country: US (occurrence: US)
  Receive Date: 20240111
  Receipt Date: 20240111
  Transmission Date: 20240410
  Serious: Yes (Other)
  Sender: FDA-Public Use
  Company Number: US-GILEAD-2024-0657864

PATIENT
  Age: 36 Year
  Sex: Male

DRUGS (11)
  1. AZTREONAM LYSINE [Suspect]
     Active Substance: AZTREONAM LYSINE
     Indication: Cystic fibrosis lung
     Dosage: : INHALE 1 ML VIA ALTERA NEBULIZER THREE TIMES A DAY EVERY OTHER MONTH,
     Route: 055
  2. MAVYRET [Concomitant]
     Active Substance: GLECAPREVIR\PIBRENTASVIR
     Dosage: UNK
  3. KITABIS PAK [Concomitant]
     Active Substance: TOBRAMYCIN
     Dosage: UNK
  4. PULMOZYME [Concomitant]
     Active Substance: DORNASE ALFA
     Dosage: UNK
  5. TRIKAFTA [Concomitant]
     Active Substance: ELEXACAFTOR\IVACAFTOR\TEZACAFTOR
     Dosage: UNK
  6. PRAZOSIN [Concomitant]
     Active Substance: PRAZOSIN
     Dosage: UNK
  7. SYMBICORT [Concomitant]
     Active Substance: BUDESONIDE\FORMOTEROL FUMARATE DIHYDRATE
     Dosage: UNK
  8. ALBUTEROL SULFATE [Concomitant]
     Active Substance: ALBUTEROL SULFATE
     Dosage: 0.63MG/3ML VIAL-NEB
  9. VITAMIN E [Concomitant]
     Active Substance: .ALPHA.-TOCOPHEROL
     Dosage: UNK
  10. ZENPEP [Concomitant]
     Active Substance: PANCRELIPASE AMYLASE\PANCRELIPASE LIPASE\PANCRELIPASE PROTEASE
     Dosage: UNK
  11. MENADIONE [Concomitant]
     Active Substance: MENADIONE
     Dosage: UNK

REACTIONS (1)
  - Influenza [Recovering/Resolving]

NARRATIVE: CASE EVENT DATE: 20240101
